FAERS Safety Report 7458857-6 (Version None)
Quarter: 2011Q2

REPORT INFORMATION
  Report Type: 
  Country: None (occurrence: None)
  Receive Date: 20110504
  Receipt Date: 20110421
  Transmission Date: 20111010
  Serious: Yes (Other)
  Sender: FDA-Public Use
  Company Number: CA-MYLANLABS-2011S1008570

PATIENT
  Age: 70 Year
  Sex: Male
  Weight: 113.38 kg

DRUGS (3)
  1. GEN-AMIODARONE [Suspect]
     Dates: end: 20040615
  2. LIPITOR [Suspect]
     Indication: BLOOD CHOLESTEROL INCREASED
     Dates: start: 20010722, end: 20040615
  3. GEN-AMIODARONE [Suspect]
     Indication: ARRHYTHMIA
     Dates: start: 20040421

REACTIONS (12)
  - BLOOD ALKALINE PHOSPHATASE INCREASED [None]
  - DECREASED APPETITE [None]
  - DYSPNOEA [None]
  - HEPATIC FUNCTION ABNORMAL [None]
  - VOMITING [None]
  - CONSTIPATION [None]
  - CHROMATURIA [None]
  - GAMMA-GLUTAMYLTRANSFERASE INCREASED [None]
  - FATIGUE [None]
  - NAUSEA [None]
  - ASTHENIA [None]
  - WEIGHT DECREASED [None]
